FAERS Safety Report 8857243 (Version 2)
Quarter: 2012Q4

REPORT INFORMATION
  Report Type: 
  Country: FR (occurrence: FR)
  Receive Date: 20121024
  Receipt Date: 20121116
  Transmission Date: 20130627
  Serious: Yes (Death, Life-Threatening, Hospitalization, Other)
  Sender: FDA-Public Use
  Company Number: FR-ASTRAZENECA-2012SE80988

PATIENT
  Sex: Male

DRUGS (18)
  1. BRILIQUE [Suspect]
     Route: 048
     Dates: start: 20120909, end: 20120918
  2. PROCORALAN [Interacting]
     Route: 048
     Dates: start: 20120911, end: 20120917
  3. BISOCE [Interacting]
     Route: 048
     Dates: start: 20120913, end: 20120914
  4. KARDEGIC [Concomitant]
     Route: 048
     Dates: start: 20120909
  5. DOBUTAMINE [Concomitant]
     Route: 042
     Dates: start: 20120909
  6. NORADRENALINE [Concomitant]
     Route: 042
     Dates: start: 20120909
  7. LASILIX [Concomitant]
  8. HEPARINE [Concomitant]
  9. INEXIUM [Concomitant]
  10. INEGY [Concomitant]
  11. DIFFU K [Concomitant]
  12. PLAVIX [Concomitant]
  13. PREVISCAN [Concomitant]
  14. PRAXILENE [Concomitant]
  15. NEURONTIN [Concomitant]
  16. LANTUS [Concomitant]
  17. HUMALOG [Concomitant]
  18. FUMAFER [Concomitant]

REACTIONS (8)
  - Drug interaction [Unknown]
  - Multi-organ failure [Fatal]
  - Bradycardia [Recovered/Resolved]
  - Conduction disorder [Recovered/Resolved]
  - Cardio-respiratory arrest [Recovered/Resolved]
  - Torsade de pointes [Recovered/Resolved]
  - C-reactive protein increased [Unknown]
  - Pyrexia [Unknown]
